FAERS Safety Report 15378717 (Version 1)
Quarter: 2018Q4

REPORT INFORMATION
  Report Type: Spontaneous
  Country: GB (occurrence: FR)
  Receive Date: 20180913
  Receipt Date: 20180913
  Transmission Date: 20190204
  Serious: Yes (Hospitalization)
  Sender: FDA-Public Use
  Company Number: FR-FRESENIUS KABI-FK201809409

PATIENT
  Age: 12 Month
  Sex: Male
  Weight: 7.7 kg

DRUGS (13)
  1. SMOFLIPID [Suspect]
     Active Substance: FISH OIL\MEDIUM-CHAIN TRIGLYCERIDES\OLIVE OIL\SOYBEAN OIL
     Indication: PARENTERAL NUTRITION
     Dosage: VIA CENTRAL VENOUS ROUTE
     Route: 042
     Dates: start: 20180720
  2. POTASSIUM CHLORIDE (MANUFACTURER UNKNOWN) [Suspect]
     Active Substance: POTASSIUM CHLORIDE
     Indication: PARENTERAL NUTRITION
     Dosage: VIA CENTRAL VENOUS ROUTE
     Route: 065
     Dates: start: 20180720
  3. AREDIA [Concomitant]
     Active Substance: PAMIDRONATE DISODIUM
     Indication: OSTEOGENESIS IMPERFECTA
     Dosage: UNKNOWN
     Route: 065
     Dates: end: 201805
  4. OLIGO-ELEMENTS PEDIATRIQUE [Suspect]
     Active Substance: MINERALS
     Indication: PARENTERAL NUTRITION
     Dosage: VIA CENTRAL VENOUS ROUTE
     Route: 065
     Dates: start: 20180720
  5. MAGNESIUM CHLORIDE. [Suspect]
     Active Substance: MAGNESIUM CHLORIDE
     Indication: PARENTERAL NUTRITION
     Dosage: VIA CENTRAL VENOUS ROUTE
     Route: 065
     Dates: start: 20180720
  6. COLECALCIFEROL [Concomitant]
     Active Substance: CHOLECALCIFEROL
     Indication: PRODUCT USED FOR UNKNOWN INDICATION
     Dosage: UNKNOWN
     Route: 048
  7. CALCIUM GLUCONATE. [Suspect]
     Active Substance: CALCIUM GLUCONATE
     Indication: PARENTERAL NUTRITION
     Dosage: VIA CENTRAL VENOUS ROUTE
     Route: 042
     Dates: start: 20180720
  8. SODIUM CHLORIDE (MANUFACTURER UNKNOWN) [Suspect]
     Active Substance: SODIUM CHLORIDE
     Indication: PARENTERAL NUTRITION
     Dosage: VIA CENTRAL VENOUS ROUTE
     Route: 042
     Dates: start: 20180720
  9. SOLUVIT [Suspect]
     Active Substance: VITAMINS
     Indication: PARENTERAL NUTRITION
     Dosage: VIA CENTRAL VENOUS ROUTE
     Dates: start: 20180720
  10. GLUCOSE 1-PHOSPHATE DISODIUM [Suspect]
     Active Substance: .ALPHA.-GLUCOSE-1-PHOSPHATE
     Indication: PARENTERAL NUTRITION
     Dosage: VIA CENTRAL VENOUS ROUTE
     Route: 042
     Dates: start: 20180720
  11. CYSTEINE/GLYCINE/ALANINE/SERINE/ASPARTIC ACID/LYSINE/TYROSINE/LEUCINE/METHIONINE/PHENYLALANINE/HISTI [Suspect]
     Active Substance: AMINO ACIDS
     Indication: PARENTERAL NUTRITION
     Dosage: VIA CENTRAL VENOUS ROUTE
     Route: 065
     Dates: start: 20180720
  12. VITALIPID INFANT [Suspect]
     Active Substance: ERGOCALCIFEROL\PHYTONADIONE\TOCOPHEROL\VITAMIN A PALMITATE
     Indication: PARENTERAL NUTRITION
     Dosage: VIA CENTRAL VENOUS ROUTE
     Route: 042
     Dates: start: 20180720
  13. GLUCOSE (NOT SPECIFIED) [Suspect]
     Active Substance: DEXTROSE
     Indication: PARENTERAL NUTRITION
     Dosage: VIA CENTRAL VENOUS ROUTE
     Route: 042
     Dates: start: 20180720

REACTIONS (1)
  - Bacterial sepsis [Recovered/Resolved]

NARRATIVE: CASE EVENT DATE: 20180807
